FAERS Safety Report 7798870-2 (Version None)
Quarter: 2011Q4

REPORT INFORMATION
  Report Type: 
  Country: None (occurrence: None)
  Receive Date: 20111006
  Receipt Date: 20111003
  Transmission Date: 20120403
  Serious: Yes (Hospitalization)
  Sender: FDA-Public Use
  Company Number: US-JNJFOC-20061006824

PATIENT
  Sex: Male
  Weight: 97.52 kg

DRUGS (4)
  1. SEROQUEL [Suspect]
     Indication: BIPOLAR DISORDER
  2. SEROQUEL [Suspect]
     Indication: DEPRESSION
  3. RISPERDAL [Suspect]
     Indication: DEPRESSION
     Dates: start: 19990621
  4. RISPERDAL [Suspect]
     Indication: BIPOLAR DISORDER
     Dates: start: 19990621

REACTIONS (2)
  - DIABETES MELLITUS [None]
  - SUICIDE ATTEMPT [None]
